FAERS Safety Report 8553088-0 (Version None)
Quarter: 2012Q3

REPORT INFORMATION
  Report Type: 
  Country: None (occurrence: None)
  Receive Date: 20120731
  Receipt Date: 20120723
  Transmission Date: 20120928
  Serious: Yes (Hospitalization, Other)
  Sender: FDA-Public Use
  Company Number: CN-SANOFI-AVENTIS-2012SA052316

PATIENT
  Age: 66 Year
  Sex: Female
  Weight: 66 kg

DRUGS (6)
  1. SPIRONOLACTONE [Concomitant]
     Indication: MYOCARDIAL INFARCTION
  2. LIPITOR [Concomitant]
     Indication: MYOCARDIAL INFARCTION
  3. FUROSEMIDE [Concomitant]
     Indication: MYOCARDIAL INFARCTION
  4. PLAVIX [Suspect]
     Indication: MYOCARDIAL INFARCTION
     Route: 048
     Dates: end: 20090825
  5. METOPROLOL TARTRATE [Concomitant]
     Indication: MYOCARDIAL INFARCTION
  6. ASPIRIN [Concomitant]
     Indication: MYOCARDIAL INFARCTION

REACTIONS (7)
  - HAEMATEMESIS [None]
  - HAEMORRHAGE [None]
  - LIP INJURY [None]
  - GASTROINTESTINAL HAEMORRHAGE [None]
  - MELAENA [None]
  - MALLORY-WEISS SYNDROME [None]
  - GASTRITIS [None]
